FAERS Safety Report 21722177 (Version 1)
Quarter: 2022Q4

REPORT INFORMATION
  Report Type: Report from Study
  Country: FR (occurrence: FR)
  Receive Date: 20221213
  Receipt Date: 20221213
  Transmission Date: 20230113
  Serious: Yes (Other)
  Sender: FDA-Public Use
  Company Number: FR-Accord-290665

PATIENT
  Age: 8 Year

DRUGS (8)
  1. CARBOPLATIN [Suspect]
     Active Substance: CARBOPLATIN
     Indication: Hepatoblastoma
     Dosage: AUC 6.6 MG/ML/MIN IN CYCLE A AND AUC 10.6 MG/ML/MIN IN CYCLE B 1
  2. CISPLATIN [Suspect]
     Active Substance: CISPLATIN
     Indication: Hepatoblastoma
     Dosage: 80 MG/M2 CONTINUOUS 24 HOUR INFUSION (CUMULATIVE DOSE 480 MG/M2)
  3. DOXORUBICIN [Suspect]
     Active Substance: DOXORUBICIN
     Indication: Hepatoblastoma
     Dosage: 60 MG/M2 IN CYCLE A, 50 MG/M2 IN CYCLE B AND 40 MG/M2 IN CYCLE C
  4. TACROLIMUS [Suspect]
     Active Substance: TACROLIMUS
     Indication: Hepatoblastoma
  5. IRINOTECAN [Suspect]
     Active Substance: IRINOTECAN
     Indication: Hepatoblastoma
  6. CAMPTOTHECIN [Suspect]
     Active Substance: CAMPTOTHECIN
     Indication: Hepatoblastoma
     Dosage: 404 MG/M2
  7. CARBOPLATIN [Suspect]
     Active Substance: CARBOPLATIN
     Indication: Hepatoblastoma
     Dosage: HOUR INFUSION EVERY 3 WEEKS (CUMULATIVE DOSE 1800 MG/M2)
  8. DOXORUBICIN [Suspect]
     Active Substance: DOXORUBICIN
     Indication: Hepatoblastoma
     Dosage: CONTINUOUS 48 HOUR INFUSION EVERY 3 WEEKS

REACTIONS (2)
  - Renal impairment [Unknown]
  - Off label use [Unknown]
